FAERS Safety Report 7190561-4 (Version None)
Quarter: 2010Q4

REPORT INFORMATION
  Report Type: 
  Country: None (occurrence: None)
  Receive Date: 20101210
  Receipt Date: 20101125
  Transmission Date: 20110411
  Serious: Yes (Death, Hospitalization)
  Sender: FDA-Public Use
  Company Number: 2006000117

PATIENT
  Age: 75 Year
  Sex: Female
  Weight: 46.8 kg

DRUGS (17)
  1. ERLOTINIB HCL (TABLET) [Suspect]
     Indication: NON-SMALL CELL LUNG CANCER
     Dosage: 150 MG (MG, QD), ORAL
     Route: 048
     Dates: start: 20050819, end: 20051224
  2. ALBUTEROL [Concomitant]
  3. ALLEGRA [Concomitant]
  4. ATROVENT [Concomitant]
  5. CATAPRES [Concomitant]
  6. COMBIVENT [Concomitant]
  7. DECADRON [Concomitant]
  8. DILTIAZEM [Concomitant]
  9. INSULIN (INSULIN) [Concomitant]
  10. LASIX [Concomitant]
  11. LEVOTHYROXINE SODIUM [Concomitant]
  12. NORMODYNE [Concomitant]
  13. PRINIVIL [Concomitant]
  14. PROPOFOL [Concomitant]
  15. SINGULAIR [Concomitant]
  16. TPN (TPN) [Concomitant]
  17. VASOTEC [Concomitant]

REACTIONS (7)
  - CARDIOPULMONARY FAILURE [None]
  - DEHYDRATION [None]
  - HAEMOGLOBIN DECREASED [None]
  - HYDROCEPHALUS [None]
  - HYPOCALCAEMIA [None]
  - HYPOPHAGIA [None]
  - NAUSEA [None]
